FAERS Safety Report 14399801 (Version 2)
Quarter: 2018Q1

REPORT INFORMATION
  Report Type: Spontaneous
  Country: US (occurrence: US)
  Receive Date: 20180117
  Receipt Date: 20180326
  Transmission Date: 20180509
  Serious: Yes (Hospitalization)
  Sender: FDA-Public Use
  Company Number: US-JNJFOC-20171232772

PATIENT
  Age: 68 Year
  Sex: Female

DRUGS (7)
  1. BABY ASPIRIN [Suspect]
     Active Substance: ASPIRIN
     Indication: VASCULAR STENT THROMBOSIS
     Route: 048
  2. XARELTO [Suspect]
     Active Substance: RIVAROXABAN
     Indication: INTERMITTENT CLAUDICATION
     Route: 048
     Dates: start: 20141113, end: 20141117
  3. XARELTO [Suspect]
     Active Substance: RIVAROXABAN
     Indication: VASCULAR STENT THROMBOSIS
     Route: 048
     Dates: start: 20141119, end: 20141122
  4. PLAVIX [Suspect]
     Active Substance: CLOPIDOGREL BISULFATE
     Indication: VASCULAR STENT THROMBOSIS
     Dosage: 75 MG, 1/2 TABLET DAILY
     Route: 048
     Dates: end: 20141122
  5. XARELTO [Suspect]
     Active Substance: RIVAROXABAN
     Indication: INTERMITTENT CLAUDICATION
     Route: 048
     Dates: start: 20141119, end: 20141122
  6. BABY ASPIRIN [Suspect]
     Active Substance: ASPIRIN
     Indication: VASCULAR STENT THROMBOSIS
     Route: 048
     Dates: end: 20141122
  7. XARELTO [Suspect]
     Active Substance: RIVAROXABAN
     Indication: VASCULAR STENT THROMBOSIS
     Route: 048
     Dates: start: 20141113, end: 20141117

REACTIONS (1)
  - Gastrointestinal haemorrhage [Unknown]

NARRATIVE: CASE EVENT DATE: 20141122
